FAERS Safety Report 18193610 (Version 2)
Quarter: 2020Q3

REPORT INFORMATION
  Report Type: Spontaneous
  Country: GB (occurrence: GB)
  Receive Date: 20200825
  Receipt Date: 20200903
  Transmission Date: 20201103
  Serious: Yes (Hospitalization, Other)
  Sender: FDA-Public Use
  Company Number: GB-LUNDBECK-DKLU1059205

PATIENT
  Age: 9 Year
  Sex: Male

DRUGS (9)
  1. PREDNISOLONE. [Concomitant]
     Active Substance: PREDNISOLONE
     Indication: GENERALISED ONSET NON-MOTOR SEIZURE
     Dosage: N 8?WEEK REDUCING COURSE
     Route: 065
  2. VALPROATE SODIUM. [Interacting]
     Active Substance: VALPROATE SODIUM
     Route: 065
  3. VALPROATE SODIUM. [Interacting]
     Active Substance: VALPROATE SODIUM
     Indication: SEIZURE
     Route: 065
  4. CLOBAZAM. [Suspect]
     Active Substance: CLOBAZAM
     Indication: SEIZURE
     Route: 065
  5. LAMOTRIGINE. [Interacting]
     Active Substance: LAMOTRIGINE
     Indication: SEIZURE
     Route: 065
  6. LEVETIRACETAM. [Interacting]
     Active Substance: LEVETIRACETAM
     Indication: PRODUCT USED FOR UNKNOWN INDICATION
     Route: 065
  7. CLOBAZAM. [Interacting]
     Active Substance: CLOBAZAM
     Route: 065
  8. ETHOSUXIMIDE. [Interacting]
     Active Substance: ETHOSUXIMIDE
     Indication: SEIZURE
     Route: 065
  9. LAMOTRIGINE. [Interacting]
     Active Substance: LAMOTRIGINE
     Route: 065

REACTIONS (6)
  - Toxicity to various agents [Recovered/Resolved]
  - Coma blister [Recovered/Resolved]
  - Blister [Recovered/Resolved]
  - Pneumonia [Recovered/Resolved]
  - Liver function test abnormal [Unknown]
  - Generalised oedema [Recovered/Resolved]
